FAERS Safety Report 9036569 (Version 1)
Quarter: 2013Q1

REPORT INFORMATION
  Report Type: Report from Study
  Country: US (occurrence: US)
  Receive Date: 20130129
  Receipt Date: 20130129
  Transmission Date: 20140127
  Serious: No
  Sender: FDA-Public Use
  Company Number: US-ABBOTT-12P-163-0888940-00

PATIENT
  Age: 54 Year
  Sex: Male

DRUGS (4)
  1. HUMIRA 40 MG/0.8 ML PEN [Suspect]
     Indication: COLITIS ULCERATIVE
  2. HUMIRA 40 MG/0.8 ML PEN [Suspect]
     Indication: ARTHRALGIA
  3. BENICAR [Concomitant]
     Indication: HYPERTENSION
     Dosage: 40 MG DAILY
  4. PREVACID [Concomitant]
     Indication: DYSPEPSIA
     Dosage: EVERY DAY

REACTIONS (4)
  - Energy increased [Recovering/Resolving]
  - Therapeutic response unexpected [Recovering/Resolving]
  - Arthralgia [Recovered/Resolved]
  - Pre-existing condition improved [Recovered/Resolved]
